FAERS Safety Report 25017897 (Version 1)
Quarter: 2025Q1

REPORT INFORMATION
  Report Type: Spontaneous
  Country: US (occurrence: None)
  Receive Date: 20250226
  Receipt Date: 20250226
  Transmission Date: 20250409
  Serious: Yes (unspecified)
  Sender: FDA-CTU
  Company Number: None

PATIENT
  Age: 63 Year
  Sex: Female
  Weight: 66.9 kg

DRUGS (3)
  1. TRUQAP [Suspect]
     Active Substance: CAPIVASERTIB
     Indication: Breast cancer female
     Dosage: FREQUENCY : TWICE A DAY;?
     Route: 048
     Dates: start: 20250128, end: 20250212
  2. DEXAMETHASONE [Suspect]
     Active Substance: DEXAMETHASONE
  3. FULVESTRANT [Concomitant]
     Active Substance: FULVESTRANT

REACTIONS (5)
  - Rash [None]
  - Pruritus [None]
  - Rash [None]
  - Skin reaction [None]
  - Asthenia [None]

NARRATIVE: CASE EVENT DATE: 20250212
